FAERS Safety Report 6968225-9 (Version None)
Quarter: 2010Q3

REPORT INFORMATION
  Report Type: 
  Country: None (occurrence: None)
  Receive Date: 20100901
  Receipt Date: 20100819
  Transmission Date: 20110219
  Serious: Yes (Disabling, Other)
  Sender: FDA-Public Use
  Company Number: 2010P1000945

PATIENT
  Age: 39 Year
  Sex: Male
  Weight: 74.8435 kg

DRUGS (3)
  1. BACTRIM DS [Suspect]
     Indication: SKIN INFECTION
     Dosage: 1 TABLET, BID, PO
     Route: 048
     Dates: start: 20100420, end: 20100430
  2. BACTRIM DS [Suspect]
     Indication: SKIN INFECTION
     Dosage: 1 TABLET, BID, PO
     Route: 048
     Dates: start: 20100520, end: 20100530
  3. PRISTIQ [Concomitant]

REACTIONS (15)
  - ABASIA [None]
  - BALANCE DISORDER [None]
  - DIZZINESS [None]
  - IMMUNE SYSTEM DISORDER [None]
  - INFECTION [None]
  - NEUTROPHIL COUNT DECREASED [None]
  - NO THERAPEUTIC RESPONSE [None]
  - OEDEMA PERIPHERAL [None]
  - ORAL INFECTION [None]
  - PAIN [None]
  - PAIN IN EXTREMITY [None]
  - SINUSITIS [None]
  - SWELLING FACE [None]
  - WEIGHT DECREASED [None]
  - WHITE BLOOD CELL COUNT DECREASED [None]
